FAERS Safety Report 25343301 (Version 3)
Quarter: 2025Q3

REPORT INFORMATION
  Report Type: Spontaneous
  Country: US (occurrence: US)
  Receive Date: 20250521
  Receipt Date: 20250724
  Transmission Date: 20251021
  Serious: No
  Sender: CALLIDITAS THERAPEUTICS AB
  Company Number: US-Calliditas-2025CAL01303

PATIENT
  Age: 69 Year
  Sex: Male

DRUGS (22)
  1. TARPEYO [Suspect]
     Active Substance: BUDESONIDE
     Indication: IgA nephropathy
     Route: 048
     Dates: start: 20250419
  2. VITAMIN D3 [Concomitant]
     Active Substance: CHOLECALCIFEROL
  3. FLOMAX [Concomitant]
     Active Substance: TAMSULOSIN HYDROCHLORIDE
  4. REPATHA [Concomitant]
     Active Substance: EVOLOCUMAB
  5. PREDNISOLONE [Concomitant]
     Active Substance: PREDNISOLONE
  6. PLAVIX [Concomitant]
     Active Substance: CLOPIDOGREL BISULFATE
  7. ORTIKOS [Concomitant]
     Active Substance: BUDESONIDE
  8. CIPROFLOXACIN [Concomitant]
     Active Substance: CIPROFLOXACIN
  9. ATORVASTATIN [Concomitant]
     Active Substance: ATORVASTATIN
  10. AMLODIPINE [Concomitant]
     Active Substance: AMLODIPINE BESYLATE
  11. ASPIRIN [Concomitant]
     Active Substance: ASPIRIN
  12. OMEPRAZOLE [Concomitant]
     Active Substance: OMEPRAZOLE
  13. NITROGLYCERIN [Concomitant]
     Active Substance: NITROGLYCERIN
  14. MINOXIDIL [Concomitant]
     Active Substance: MINOXIDIL
  15. METOPROLOL TARTRATE [Concomitant]
     Active Substance: METOPROLOL TARTRATE
  16. ISOSORBIDE MONONITRATE [Concomitant]
     Active Substance: ISOSORBIDE MONONITRATE
  17. FUROSEMIDE [Concomitant]
     Active Substance: FUROSEMIDE
  18. ALLOPURINOL [Concomitant]
     Active Substance: ALLOPURINOL
  19. TESTOSTERONE CYPIONATE [Concomitant]
     Active Substance: TESTOSTERONE CYPIONATE
  20. FIBER LAX [Concomitant]
     Active Substance: CALCIUM POLYCARBOPHIL
  21. FISH OIL [Concomitant]
     Active Substance: FISH OIL
  22. .ALPHA.-TOCOPHEROL [Concomitant]
     Active Substance: .ALPHA.-TOCOPHEROL

REACTIONS (4)
  - Dialysis [Unknown]
  - Flatulence [Unknown]
  - Dysgeusia [Unknown]
  - Hypersomnia [Recovered/Resolved]

NARRATIVE: CASE EVENT DATE: 20250501
